FAERS Safety Report 8425264-9 (Version None)
Quarter: 2012Q2

REPORT INFORMATION
  Report Type: 
  Country: None (occurrence: None)
  Receive Date: 20120605
  Receipt Date: 20120605
  Transmission Date: 20120825
  Serious: Yes (Disabling)
  Sender: FDA-Public Use
  Company Number: None

PATIENT
  Sex: Female
  Weight: 63.5036 kg

DRUGS (2)
  1. ZOCOR [Suspect]
  2. SIMVASTATIN [Suspect]

REACTIONS (2)
  - MYALGIA [None]
  - LIGAMENT DISORDER [None]
